FAERS Safety Report 5033989-0 (Version None)
Quarter: 2006Q2

REPORT INFORMATION
  Report Type: 
  Country: None (occurrence: None)
  Receive Date: 20060626
  Receipt Date: 20060418
  Transmission Date: 20061013
  Serious: Yes (Death, Disabling)
  Sender: FDA-Public Use
  Company Number: 2006AP01747

PATIENT
  Age: 19125 Day
  Sex: Female
  Weight: 44 kg

DRUGS (3)
  1. IRESSA [Suspect]
     Indication: LUNG ADENOCARCINOMA STAGE IV
     Route: 048
     Dates: start: 20060204, end: 20060215
  2. GEMCITABINE [Concomitant]
     Dosage: PERFORMED FOR 3 COURSES
     Dates: start: 20051101, end: 20051101
  3. CARBOPLATIN [Concomitant]
     Dosage: 3 COURSES PERFORMED
     Dates: start: 20051101, end: 20051101

REACTIONS (2)
  - HEPATIC FAILURE [None]
  - LIVER DISORDER [None]
